FAERS Safety Report 12776235 (Version 1)
Quarter: 2016Q3

REPORT INFORMATION
  Report Type: Spontaneous
  Country: TR (occurrence: TR)
  Receive Date: 20160923
  Receipt Date: 20160923
  Transmission Date: 20161109
  Serious: Yes (Other)
  Sender: FDA-Public Use
  Company Number: TR-KADMON PHARMACEUTICALS, LLC-KAD201312-001586

PATIENT
  Age: 31 Year
  Sex: Male

DRUGS (4)
  1. VITAMIN A [Suspect]
     Active Substance: VITAMIN A
     Indication: MEASLES
  2. RIBAVIRIN. [Suspect]
     Active Substance: RIBAVIRIN
     Indication: MEASLES
  3. RIBAVIRIN. [Suspect]
     Active Substance: RIBAVIRIN
     Indication: PNEUMONITIS
  4. VITAMIN A [Suspect]
     Active Substance: VITAMIN A
     Indication: PNEUMONITIS

REACTIONS (2)
  - Acute kidney injury [Recovering/Resolving]
  - Product use issue [Unknown]
